FAERS Safety Report 19134920 (Version 1)
Quarter: 2021Q2

REPORT INFORMATION
  Report Type: Spontaneous
  Country: NL (occurrence: FR)
  Receive Date: 20210414
  Receipt Date: 20210414
  Transmission Date: 20210717
  Serious: Yes (Hospitalization)
  Sender: FDA-Public Use
  Company Number: FR-FRESENIUS KABI-FK202103607

PATIENT
  Age: 80 Year
  Sex: Male
  Weight: 63 kg

DRUGS (4)
  1. IMIPENEM [Suspect]
     Active Substance: IMIPENEM
     Indication: ANTIBIOTIC THERAPY
     Dosage: 500 MG / 8 H
     Route: 042
     Dates: start: 20210318, end: 20210323
  2. CILASTATIN [Suspect]
     Active Substance: CILASTATIN
     Indication: ANTIBIOTIC THERAPY
     Dosage: 500 MG / 8 H
     Route: 042
     Dates: start: 20210318, end: 20210323
  3. TOCILIZUMAB. [Suspect]
     Active Substance: TOCILIZUMAB
     Indication: COVID-19
     Dosage: 500 MG DAILY
     Route: 042
     Dates: start: 20210318, end: 20210319
  4. LINEZOLID (MANUFACTURER UNKNOWN) [Suspect]
     Active Substance: LINEZOLID
     Indication: ANTIBIOTIC THERAPY
     Dosage: 1200 MG DAILY
     Route: 048
     Dates: start: 20210318, end: 20210322

REACTIONS (1)
  - Agranulocytosis [Recovered/Resolved]

NARRATIVE: CASE EVENT DATE: 20210322
